FAERS Safety Report 9561353 (Version 2)
Quarter: 2013Q3

REPORT INFORMATION
  Report Type: Spontaneous
  Country: US (occurrence: US)
  Receive Date: 20130927
  Receipt Date: 20130927
  Transmission Date: 20140515
  Serious: No
  Sender: FDA-Public Use
  Company Number: US-BIOGENIDEC-2013BI058280

PATIENT
  Age: 67 Year
  Sex: Female

DRUGS (3)
  1. TECFIDERA [Suspect]
     Indication: MULTIPLE SCLEROSIS
     Dates: start: 20130618
  2. METHADONE HCL [Concomitant]
  3. CRESTOR [Concomitant]

REACTIONS (7)
  - Eye disorder [Not Recovered/Not Resolved]
  - Gastric disorder [Unknown]
  - Abdominal pain upper [Unknown]
  - Pruritus [Unknown]
  - Neuralgia [Unknown]
  - Flushing [Unknown]
  - Abdominal pain [Unknown]
